FAERS Safety Report 7229545-6 (Version None)
Quarter: 2011Q1

REPORT INFORMATION
  Report Type: 
  Country: None (occurrence: None)
  Receive Date: 20110117
  Receipt Date: 20100517
  Transmission Date: 20110831
  Serious: Yes (Hospitalization, Other)
  Sender: FDA-Public Use
  Company Number: US-TYCO HEALTHCARE/MALLINCKRODT-T201001226

PATIENT
  Sex: Male

DRUGS (2)
  1. OMNIPAQUE 140 [Suspect]
     Indication: SPINAL DECOMPRESSION
     Dosage: UNK
  2. OPTIRAY 350 [Suspect]
     Indication: SPINAL DECOMPRESSION
     Dosage: 10 ML, SINGLE
     Route: 037
     Dates: start: 20100510, end: 20100510

REACTIONS (3)
  - OFF LABEL USE [None]
  - DYSURIA [None]
  - DRUG ADMINISTRATION ERROR [None]
